FAERS Safety Report 15627253 (Version 1)
Quarter: 2018Q4

REPORT INFORMATION
  Report Type: Spontaneous
  Country: US (occurrence: US)
  Receive Date: 20181116
  Receipt Date: 20181116
  Transmission Date: 20190205
  Serious: Yes (Hospitalization)
  Sender: FDA-Public Use
  Company Number: US-PFIZER INC-2018467653

PATIENT
  Age: 65 Year
  Sex: Male
  Weight: 63.5 kg

DRUGS (1)
  1. VIAGRA [Suspect]
     Active Substance: SILDENAFIL CITRATE
     Indication: SEXUAL DYSFUNCTION
     Dosage: 100 MG, SINGLE
     Route: 048
     Dates: start: 20181106, end: 20181106

REACTIONS (6)
  - Counterfeit product administered [Unknown]
  - Infection [Unknown]
  - Liver injury [Unknown]
  - Malaise [Unknown]
  - Renal impairment [Unknown]
  - Pallor [Unknown]

NARRATIVE: CASE EVENT DATE: 20181106
